FAERS Safety Report 7756930-6 (Version None)
Quarter: 2011Q3

REPORT INFORMATION
  Report Type: 
  Country: None (occurrence: None)
  Receive Date: 20110916
  Receipt Date: 20110817
  Transmission Date: 20111222
  Serious: Yes (Hospitalization)
  Sender: FDA-Public Use
  Company Number: GB-GLAXOSMITHKLINE-B0739055A

PATIENT
  Age: 70 Year
  Sex: Male

DRUGS (2)
  1. VOTRIENT [Suspect]
     Indication: RENAL CELL CARCINOMA
     Route: 048
     Dates: start: 20110712
  2. ANTIHYPERTENSIVE [Concomitant]

REACTIONS (7)
  - BLINDNESS [None]
  - HEADACHE [None]
  - CEREBRAL INFARCTION [None]
  - HYPERTENSION [None]
  - POSTERIOR REVERSIBLE ENCEPHALOPATHY SYNDROME [None]
  - BRAIN OEDEMA [None]
  - EPILEPSY [None]
